FAERS Safety Report 16964608 (Version 1)
Quarter: 2019Q4

REPORT INFORMATION
  Report Type: Report from Study
  Country: PE (occurrence: PE)
  Receive Date: 20191028
  Receipt Date: 20191028
  Transmission Date: 20200122
  Serious: Yes (Other)
  Sender: FDA-Public Use
  Company Number: PE-UCBSA-2019044812

PATIENT
  Age: 73 Year
  Sex: Female
  Weight: 68 kg

DRUGS (5)
  1. VITAMIN D [VITAMIN D NOS] [Concomitant]
     Active Substance: VITAMIN D NOS
     Indication: OSTEOPOROSIS
     Dosage: 400 UI, ONCE DAILY (QD)
     Route: 048
     Dates: start: 20160101
  2. CERTOLIZUMAB PEGOL [Suspect]
     Active Substance: CERTOLIZUMAB PEGOL
     Indication: RHEUMATOID ARTHRITIS
     Dosage: 200 MILLIGRAM, EV 2 WEEKS(QOW)
     Route: 058
     Dates: start: 20160701
  3. CLAVULANIC ACID [Concomitant]
     Active Substance: CLAVULANIC ACID
     Indication: RHEUMATOID ARTHRITIS
     Dosage: 15 MILLIGRAM, WEEKLY (QW)
     Route: 058
     Dates: start: 20160101
  4. FOLIC ACID. [Concomitant]
     Active Substance: FOLIC ACID
     Indication: RHEUMATOID ARTHRITIS
     Dosage: 1 MILLIGRAM, ONCE DAILY (QD)
     Route: 048
     Dates: start: 20160101
  5. CALCIUM CITRATE [Concomitant]
     Active Substance: CALCIUM CITRATE
     Indication: OSTEOPOROSIS
     Dosage: 1500 MILLIGRAM, ONCE DAILY (QD)
     Route: 048
     Dates: start: 20160101

REACTIONS (1)
  - Pharyngotonsillitis [Recovered/Resolved]

NARRATIVE: CASE EVENT DATE: 20191002
